FAERS Safety Report 4476611-4 (Version None)
Quarter: 2004Q4

REPORT INFORMATION
  Report Type: 
  Country: None (occurrence: None)
  Receive Date: 20041013
  Receipt Date: 20040927
  Transmission Date: 20050328
  Serious: Yes (Death, Hospitalization, Other)
  Sender: FDA-Public Use
  Company Number: US_0409106209

PATIENT
  Age: 66 Year
  Sex: Male

DRUGS (1)
  1. PROZAC [Suspect]
     Indication: DEPRESSION
     Dosage: 40 MG
     Dates: start: 20000707

REACTIONS (13)
  - ANTIDEPRESSANT DRUG CLEARANCE DECREASED [None]
  - ANTIDEPRESSANT DRUG LEVEL ABOVE THERAPEUTIC [None]
  - APHAGIA [None]
  - COMPLETED SUICIDE [None]
  - CONDITION AGGRAVATED [None]
  - DEPRESSION [None]
  - GUN SHOT WOUND [None]
  - HYPERACUSIS [None]
  - INTENTIONAL SELF-INJURY [None]
  - METABOLIC DISORDER [None]
  - PARANOIA [None]
  - PHOTOPHOBIA [None]
  - PSYCHOMOTOR HYPERACTIVITY [None]
